FAERS Safety Report 5833198-9 (Version None)
Quarter: 2008Q3

REPORT INFORMATION
  Report Type: 
  Country: None (occurrence: None)
  Receive Date: 20080731
  Receipt Date: 20080717
  Transmission Date: 20090109
  Serious: Yes (Other)
  Sender: FDA-Public Use
  Company Number: 2008AL007288

PATIENT
  Age: 72 Year
  Sex: Female
  Weight: 50.3493 kg

DRUGS (3)
  1. DIGOXIN [Suspect]
     Indication: PALPITATIONS
     Dosage: 0.125MG, DAILY, PO
     Route: 048
     Dates: start: 20071201
  2. LIPITOR [Concomitant]
  3. LEVOXYL [Concomitant]

REACTIONS (5)
  - ANOREXIA [None]
  - DIZZINESS [None]
  - NAUSEA [None]
  - THERAPEUTIC AGENT TOXICITY [None]
  - WEIGHT DECREASED [None]
